FAERS Safety Report 5397872-3 (Version None)
Quarter: 2007Q4

REPORT INFORMATION
  Report Type: 
  Country: None (occurrence: None)
  Receive Date: 20070726
  Receipt Date: 20070723
  Transmission Date: 20080405
  Serious: Yes (Hospitalization)
  Sender: FDA-Public Use
  Company Number: ES-BRISTOL-MYERS SQUIBB COMPANY-13854856

PATIENT

DRUGS (2)
  1. REYATAZ [Suspect]
     Indication: HIV INFECTION
     Route: 048
  2. UNKNOWN PRODUCT [Interacting]
     Indication: LOCAL ANTIFUNGAL TREATMENT

REACTIONS (2)
  - DRUG INTERACTION [None]
  - HEPATOTOXICITY [None]
